FAERS Safety Report 12668855 (Version 1)
Quarter: 2016Q3

REPORT INFORMATION
  Report Type: Spontaneous
  Country: FR (occurrence: FR)
  Receive Date: 20160819
  Receipt Date: 20160819
  Transmission Date: 20161109
  Serious: Yes (Hospitalization)
  Sender: FDA-Public Use
  Company Number: FR-PFIZER INC-2016391545

PATIENT
  Age: 32 Year
  Sex: Female

DRUGS (4)
  1. ACTISKENAN [Concomitant]
     Active Substance: MORPHINE SULFATE
     Indication: NEURALGIC AMYOTROPHY
  2. PARACETAMOL [Concomitant]
     Active Substance: ACETAMINOPHEN
     Indication: NEURALGIC AMYOTROPHY
  3. LYRICA [Suspect]
     Active Substance: PREGABALIN
     Indication: NEURALGIC AMYOTROPHY
     Dosage: 550 MG, DAILY
  4. SKENAN [Concomitant]
     Active Substance: MORPHINE SULFATE
     Indication: NEURALGIC AMYOTROPHY

REACTIONS (4)
  - Pyrexia [Unknown]
  - Arthralgia [Unknown]
  - Hyperhidrosis [Unknown]
  - Chills [Unknown]
